FAERS Safety Report 7745223-9 (Version None)
Quarter: 2011Q3

REPORT INFORMATION
  Report Type: 
  Country: None (occurrence: None)
  Receive Date: 20110913
  Receipt Date: 20110902
  Transmission Date: 20111222
  Serious: Yes (Life-Threatening, Hospitalization)
  Sender: FDA-Public Use
  Company Number: FR-JNJFOC-20110903874

PATIENT
  Sex: Female

DRUGS (3)
  1. ZOLPIDEM [Suspect]
     Indication: PRODUCT USED FOR UNKNOWN INDICATION
     Dosage: 10 TABLETS
     Route: 048
     Dates: start: 20110823, end: 20110823
  2. ACETAMINOPHEN AND CODEINE PHOSPHATE [Suspect]
     Indication: PRODUCT USED FOR UNKNOWN INDICATION
     Dosage: 8 TABLETS
     Route: 048
     Dates: start: 20110823, end: 20110823
  3. ACETAMINOPHEN AND TRAMADOL HCL [Suspect]
     Indication: PRODUCT USED FOR UNKNOWN INDICATION
     Dosage: 70 DF ONCE
     Route: 048
     Dates: start: 20110823, end: 20110823

REACTIONS (5)
  - MULTIPLE DRUG OVERDOSE INTENTIONAL [None]
  - RHABDOMYOLYSIS [None]
  - LIVER INJURY [None]
  - PROTHROMBIN LEVEL INCREASED [None]
  - LOSS OF CONSCIOUSNESS [None]
